FAERS Safety Report 4533618-6 (Version None)
Quarter: 2004Q4

REPORT INFORMATION
  Report Type: 
  Country: None (occurrence: None)
  Receive Date: 20041221
  Receipt Date: 20041215
  Transmission Date: 20050328
  Serious: Yes (Hospitalization)
  Sender: FDA-Public Use
  Company Number: US-BRISTOL-MYERS SQUIBB COMPANY-12796041

PATIENT
  Age: 64 Year
  Sex: Male
  Weight: 67 kg

DRUGS (9)
  1. PACLITAXEL [Suspect]
     Indication: OESOPHAGEAL CARCINOMA
     Route: 042
     Dates: start: 20041118, end: 20041118
  2. CARBOPLATIN [Suspect]
     Indication: OESOPHAGEAL CARCINOMA
     Dosage: AUC=6 THERAPY FROM 18-OCT-2004 TO 18-NOV-2004
     Route: 042
     Dates: start: 20041118, end: 20041118
  3. FLUOROURACIL [Suspect]
     Indication: OESOPHAGEAL CARCINOMA
     Dosage: 225 MG/M2 THERAPY FROM 18-OCT-2004 TO 18-NOV-2004
     Route: 042
     Dates: start: 20041118, end: 20041118
  4. RADIATION THERAPY [Concomitant]
     Indication: OESOPHAGEAL CARCINOMA
  5. ACTOS [Concomitant]
     Indication: DIABETES MELLITUS
     Dates: start: 19970101
  6. ZOCOR [Concomitant]
     Indication: BLOOD TRIGLYCERIDES INCREASED
     Dates: start: 20010101
  7. FENTANYL [Concomitant]
     Indication: PAIN
     Route: 062
     Dates: start: 20041008
  8. ATIVAN [Concomitant]
     Indication: ANXIETY
     Dates: start: 20041001
  9. METFORMIN HCL [Concomitant]
     Indication: DIABETES MELLITUS
     Dates: start: 19970101

REACTIONS (3)
  - DEHYDRATION [None]
  - NAUSEA [None]
  - VOMITING [None]
